FAERS Safety Report 12722164 (Version 2)
Quarter: 2016Q3

REPORT INFORMATION
  Report Type: Spontaneous
  Country: US (occurrence: US)
  Receive Date: 20160907
  Receipt Date: 20160915
  Transmission Date: 20161109
  Serious: Yes (Hospitalization, Other)
  Sender: FDA-Public Use
  Company Number: PHEH2016US022072

PATIENT
  Age: 56 Year
  Sex: Female

DRUGS (2)
  1. TEGRETOL [Suspect]
     Active Substance: CARBAMAZEPINE
     Indication: TRIGEMINAL NEURALGIA
     Route: 065
  2. COPAXONE [Suspect]
     Active Substance: GLATIRAMER ACETATE
     Indication: MULTIPLE SCLEROSIS
     Dosage: 20 MG, UNK
     Route: 058
     Dates: start: 20160501

REACTIONS (6)
  - Contusion [Unknown]
  - Blood sodium decreased [Unknown]
  - Facial bones fracture [Unknown]
  - Loss of consciousness [Unknown]
  - Concussion [Unknown]
  - Head injury [Unknown]

NARRATIVE: CASE EVENT DATE: 20160727
